FAERS Safety Report 9055528 (Version 1)
Quarter: 2013Q1

REPORT INFORMATION
  Report Type: Spontaneous
  Country: FR (occurrence: FR)
  Receive Date: 20130206
  Receipt Date: 20130206
  Transmission Date: 20140127
  Serious: Yes (Hospitalization)
  Sender: FDA-Public Use
  Company Number: FR-GLAXOSMITHKLINE-B0862825A

PATIENT
  Age: 82 None
  Sex: Female

DRUGS (1)
  1. ARIXTRA [Suspect]
     Indication: THROMBOSIS PROPHYLAXIS
     Route: 058
     Dates: start: 20121024, end: 20121102

REACTIONS (2)
  - Injection site haematoma [Recovered/Resolved]
  - Intra-abdominal haematoma [Recovered/Resolved]
